FAERS Safety Report 22587723 (Version 6)
Quarter: 2023Q4

REPORT INFORMATION
  Report Type: Spontaneous
  Country: PT (occurrence: PT)
  Receive Date: 20230612
  Receipt Date: 20231020
  Transmission Date: 20240109
  Serious: Yes (Other)
  Sender: FDA-Public Use
  Company Number: PT-AUROBINDO-AUR-APL-2023-041340

PATIENT
  Age: 88 Year
  Sex: Female

DRUGS (1)
  1. METFORMIN [Suspect]
     Active Substance: METFORMIN HYDROCHLORIDE
     Indication: Type 2 diabetes mellitus
     Dosage: UNK
     Route: 048

REACTIONS (16)
  - Pernicious anaemia [Recovered/Resolved]
  - Vitamin B12 deficiency [Recovered/Resolved]
  - Vitamin B12 decreased [Unknown]
  - Atrophy [Unknown]
  - Anaemia megaloblastic [Unknown]
  - Anaemia macrocytic [Unknown]
  - Blood bilirubin increased [Unknown]
  - Blood lactate dehydrogenase increased [Unknown]
  - Chronic gastritis [Unknown]
  - Fatigue [Unknown]
  - Intestinal metaplasia [Unknown]
  - Jaundice [Unknown]
  - Mean cell volume increased [Unknown]
  - Neutrophil hypersegmented morphology present [Unknown]
  - Pallor [Unknown]
  - Reticulocyte count decreased [Unknown]
